FAERS Safety Report 9775320 (Version 1)
Quarter: 2013Q4

REPORT INFORMATION
  Report Type: Spontaneous
  Country: SE (occurrence: SE)
  Receive Date: 20131220
  Receipt Date: 20131220
  Transmission Date: 20140711
  Serious: Yes (Other)
  Sender: FDA-Public Use
  Company Number: SE-ELI_LILLY_AND_COMPANY-SE201312006688

PATIENT
  Age: 19 Year
  Sex: Male

DRUGS (2)
  1. ZYPREXA [Suspect]
     Indication: EATING DISORDER
     Dosage: 2.5 MG, QD
     Route: 065
     Dates: start: 200910, end: 201111
  2. ZYPREXA [Suspect]
     Indication: OBSESSIVE-COMPULSIVE DISORDER

REACTIONS (6)
  - Cognitive disorder [Not Recovered/Not Resolved]
  - Blunted affect [Not Recovered/Not Resolved]
  - Hypotonia [Not Recovered/Not Resolved]
  - Somnolence [Not Recovered/Not Resolved]
  - Increased appetite [Not Recovered/Not Resolved]
  - Off label use [Recovered/Resolved]
